FAERS Safety Report 22012387 (Version 1)
Quarter: 2023Q1

REPORT INFORMATION
  Report Type: Spontaneous
  Country: US (occurrence: US)
  Receive Date: 20230220
  Receipt Date: 20230220
  Transmission Date: 20230418
  Serious: No
  Sender: FDA-Public Use
  Company Number: US-ALLERGAN-2211963US

PATIENT

DRUGS (1)
  1. OZURDEX [Suspect]
     Active Substance: DEXAMETHASONE
     Indication: Cyclitis
     Dosage: 0.7 MG, SINGLE
     Route: 031
     Dates: start: 20220310, end: 20220310

REACTIONS (1)
  - Off label use [Unknown]
